FAERS Safety Report 24529675 (Version 1)
Quarter: 2024Q4

REPORT INFORMATION
  Report Type: Spontaneous
  Country: ZA (occurrence: ZA)
  Receive Date: 20241021
  Receipt Date: 20241021
  Transmission Date: 20250115
  Serious: Yes (Disabling)
  Sender: NOVARTIS
  Company Number: ZA-002147023-NVSC2024ZA203989

PATIENT
  Age: 44 Year
  Sex: Male

DRUGS (2)
  1. DABRAFENIB [Suspect]
     Active Substance: DABRAFENIB
     Indication: Metastatic malignant melanoma
     Dosage: 75 MG, QD (RAFINLAR 75 MG BD AND 1 MG MEQSEL OD)
     Route: 048
     Dates: start: 20221001, end: 20241001
  2. TRAMETINIB [Suspect]
     Active Substance: TRAMETINIB
     Indication: Metastatic malignant melanoma
     Dosage: 1 MG, QD
     Route: 048
     Dates: start: 20221001, end: 20241001

REACTIONS (1)
  - Deafness bilateral [Not Recovered/Not Resolved]
